FAERS Safety Report 17991750 (Version 1)
Quarter: 2020Q3

REPORT INFORMATION
  Report Type: Spontaneous
  Country: NL (occurrence: NL)
  Receive Date: 20200708
  Receipt Date: 20200708
  Transmission Date: 20201103
  Serious: Yes (Death, Hospitalization, Other)
  Sender: FDA-Public Use
  Company Number: NL-AMGEN-NLDSP2020106370

PATIENT
  Age: 61 Year
  Sex: Male

DRUGS (6)
  1. MORFINE [Concomitant]
     Active Substance: MORPHINE
     Dosage: 30 MILLIGRAM
     Dates: start: 20200531
  2. BEVACIZUMAB. [Suspect]
     Active Substance: BEVACIZUMAB
     Indication: NON-SMALL CELL LUNG CANCER
     Dosage: 1625 MILLIGRAM, Q3WK
     Route: 042
     Dates: start: 20200107
  3. CEFUROXIM [CEFUROXIME] [Concomitant]
     Active Substance: CEFUROXIME
     Dosage: 1500 MILLIGRAM
     Dates: start: 20200531
  4. PACLITAXEL. [Suspect]
     Active Substance: PACLITAXEL
     Indication: NON-SMALL CELL LUNG CANCER
     Dosage: 470 MILLIGRAM, Q3WK
     Route: 042
     Dates: start: 20200107
  5. IPRATROPIUM [Concomitant]
     Active Substance: IPRATROPIUM
     Dosage: 250 MILLIGRAM
     Dates: start: 20200531
  6. CARBOPLATIN. [Suspect]
     Active Substance: CARBOPLATIN
     Indication: NON-SMALL CELL LUNG CANCER
     Dosage: 900 MILLIGRAM, Q3WK
     Route: 042
     Dates: start: 20200107

REACTIONS (2)
  - Pneumothorax [Not Recovered/Not Resolved]
  - Pulmonary haemorrhage [Fatal]

NARRATIVE: CASE EVENT DATE: 20200530
